FAERS Safety Report 18731144 (Version 1)
Quarter: 2021Q1

REPORT INFORMATION
  Report Type: Spontaneous
  Country: US (occurrence: US)
  Receive Date: 20210112
  Receipt Date: 20210112
  Transmission Date: 20210419
  Serious: Yes (Hospitalization, Other)
  Sender: FDA-Public Use
  Company Number: US-ADAMAS PHARMA, LLC-2020ADA03043

PATIENT
  Age: 66 Year
  Sex: Female

DRUGS (1)
  1. AMANTADINE. [Suspect]
     Active Substance: AMANTADINE HYDROCHLORIDE
     Indication: FATIGUE
     Dosage: 100 MG, 2X/DAY
     Route: 048

REACTIONS (4)
  - Toxicity to various agents [Recovered/Resolved]
  - Respiratory distress [Recovered/Resolved]
  - Prescribed overdose [Recovered/Resolved]
  - Metabolic acidosis [Recovered/Resolved]
